FAERS Safety Report 9669316 (Version 1)
Quarter: 2013Q4

REPORT INFORMATION
  Report Type: Spontaneous
  Country: CN (occurrence: CN)
  Receive Date: 20131105
  Receipt Date: 20131105
  Transmission Date: 20140711
  Serious: Yes (Hospitalization)
  Sender: FDA-Public Use
  Company Number: PHHY2013CN123985

PATIENT
  Age: 7 Year
  Sex: Male
  Weight: 29 kg

DRUGS (2)
  1. TEGRETOL [Suspect]
     Indication: EPILEPSY
     Route: 048
  2. TEGRETOL [Suspect]
     Dosage: 0.25 G, QD
     Route: 048
     Dates: start: 20121125, end: 20121202

REACTIONS (2)
  - Altered visual depth perception [Recovering/Resolving]
  - Vision blurred [Recovering/Resolving]
